FAERS Safety Report 11482811 (Version 2)
Quarter: 2015Q4

REPORT INFORMATION
  Report Type: Report from Study
  Country: IT (occurrence: IT)
  Receive Date: 20150909
  Receipt Date: 20151009
  Transmission Date: 20160304
  Serious: Yes (Hospitalization)
  Sender: FDA-Public Use
  Company Number: IT-GILEAD-2015-0170504

PATIENT
  Age: 51 Year
  Sex: Female
  Weight: 51 kg

DRUGS (15)
  1. ACICLOVIR [Concomitant]
     Active Substance: ACYCLOVIR
     Route: 048
     Dates: start: 20150520
  2. RITUXIMAB [Suspect]
     Active Substance: RITUXIMAB
     Dosage: 550 MG, Q1WK
     Route: 042
     Dates: start: 20150610, end: 20150610
  3. RITUXIMAB [Suspect]
     Active Substance: RITUXIMAB
     Dosage: 550 MG, Q1WK
     Route: 042
     Dates: start: 20150701, end: 20150701
  4. FOSICOMBI [Concomitant]
     Active Substance: FOSINOPRIL SODIUM\HYDROCHLOROTHIAZIDE
     Indication: HYPERTENSION
     Route: 048
     Dates: start: 2013
  5. IDELALISIB [Suspect]
     Active Substance: IDELALISIB
     Indication: CHRONIC LYMPHOCYTIC LEUKAEMIA
     Dosage: 150 MG, BID
     Route: 048
     Dates: start: 20150520, end: 20150827
  6. RITUXIMAB [Suspect]
     Active Substance: RITUXIMAB
     Dosage: 550 MG, Q1WK
     Route: 042
     Dates: start: 20150527, end: 20150527
  7. RITUXIMAB [Suspect]
     Active Substance: RITUXIMAB
     Dosage: 550 MG, Q1WK
     Route: 042
     Dates: start: 20150625, end: 20150625
  8. PRAVASTATIN [Concomitant]
     Active Substance: PRAVASTATIN\PRAVASTATIN SODIUM
     Indication: HYPERCHOLESTEROLAEMIA
     Dosage: UNK UNKNOWN, UNK
     Route: 048
     Dates: start: 2013, end: 20150817
  9. RITUXIMAB [Suspect]
     Active Substance: RITUXIMAB
     Dosage: 550 MG, Q1WK
     Route: 042
     Dates: start: 20150617, end: 20150617
  10. RITUXIMAB [Suspect]
     Active Substance: RITUXIMAB
     Dosage: 550 MG, Q1WK
     Route: 042
     Dates: start: 20150708, end: 20150708
  11. RITUXIMAB [Suspect]
     Active Substance: RITUXIMAB
     Indication: CHRONIC LYMPHOCYTIC LEUKAEMIA
     Dosage: 550 MG, Q1WK
     Route: 042
     Dates: start: 20150520, end: 20150520
  12. RITUXIMAB [Suspect]
     Active Substance: RITUXIMAB
     Dosage: 550 MG, Q1WK
     Route: 042
     Dates: start: 20150603, end: 20150603
  13. VELMETIA [Concomitant]
     Active Substance: METFORMIN\SITAGLIPTIN
     Indication: DIABETES MELLITUS
     Route: 048
     Dates: start: 2013
  14. ALLOPURINOLO [Concomitant]
     Active Substance: ALLOPURINOL
     Dosage: UNK
     Route: 048
     Dates: start: 2013, end: 20150817
  15. BACTRIM [Concomitant]
     Active Substance: SULFAMETHOXAZOLE\TRIMETHOPRIM
     Route: 048
     Dates: start: 20130320

REACTIONS (1)
  - Gastroenteritis [Recovered/Resolved]

NARRATIVE: CASE EVENT DATE: 20150828
